FAERS Safety Report 9300689 (Version 1)
Quarter: 2013Q2

REPORT INFORMATION
  Report Type: Spontaneous
  Country: US (occurrence: US)
  Receive Date: 20130521
  Receipt Date: 20130521
  Transmission Date: 20140414
  Serious: Yes (Hospitalization)
  Sender: FDA-Public Use
  Company Number: US-BAYER-2013-060813

PATIENT
  Age: 29 Year
  Sex: Female
  Weight: 48.53 kg

DRUGS (4)
  1. YAZ [Suspect]
  2. GIANVI [Suspect]
  3. NAPROSYN [Concomitant]
     Dosage: UNK
     Dates: start: 20120322
  4. FLUCONAZOLE [Concomitant]
     Dosage: 150 MG, UNK

REACTIONS (3)
  - Pulmonary embolism [None]
  - Pelvic venous thrombosis [Recovered/Resolved]
  - Deep vein thrombosis [Recovered/Resolved]
